FAERS Safety Report 6988348-8 (Version None)
Quarter: 2010Q3

REPORT INFORMATION
  Report Type: 
  Country: None (occurrence: None)
  Receive Date: 20100916
  Receipt Date: 20100901
  Transmission Date: 20110219
  Serious: Yes (Hospitalization, Other)
  Sender: FDA-Public Use
  Company Number: BR-MEDIMMUNE-MEDI-0011528

PATIENT
  Sex: Male
  Weight: 6.4 kg

DRUGS (4)
  1. SYNAGIS [Suspect]
     Indication: RESPIRATORY DISORDER
     Route: 030
     Dates: start: 20100701, end: 20100701
  2. SYNAGIS [Suspect]
     Indication: CARDIAC DISORDER
  3. DIURETIC [Concomitant]
     Indication: CARDIAC DISORDER
  4. ACETYLSALICYLIC ACID [Concomitant]
     Indication: CARDIAC DISORDER

REACTIONS (5)
  - CARDIAC DISORDER [None]
  - COMA [None]
  - DYSPHONIA [None]
  - RESPIRATORY ARREST [None]
  - RESPIRATORY TRACT CONGESTION [None]
